FAERS Safety Report 4496145-0 (Version None)
Quarter: 2004Q4

REPORT INFORMATION
  Report Type: 
  Country: None (occurrence: None)
  Receive Date: 20041108
  Receipt Date: 20041108
  Transmission Date: 20050328
  Serious: No
  Sender: FDA-Public Use
  Company Number: None

PATIENT
  Age: 57 Year
  Sex: Female
  Weight: 76.2043 kg

DRUGS (1)
  1. LEVAQUIN [Suspect]
     Indication: SINUSITIS
     Dosage: 500 MG DAILY ORAL
     Route: 048
     Dates: start: 20041025, end: 20041102

REACTIONS (4)
  - ARTHRALGIA [None]
  - DIZZINESS [None]
  - EYE IRRITATION [None]
  - MYALGIA [None]
